FAERS Safety Report 6595174-0 (Version None)
Quarter: 2010Q1

REPORT INFORMATION
  Report Type: 
  Country: None (occurrence: None)
  Receive Date: 20100212
  Receipt Date: 20100202
  Transmission Date: 20100710
  Serious: Yes (Death)
  Sender: FDA-Public Use
  Company Number: 2009-189155-NL

PATIENT
  Age: 23 Year
  Sex: Female
  Weight: 99.7 kg

DRUGS (3)
  1. NUVARING [Suspect]
     Indication: CONTRACEPTION
     Dates: start: 20061011, end: 20070421
  2. MARIJUANA [Concomitant]
  3. TYLENOL-500 [Concomitant]

REACTIONS (12)
  - BLOOD POTASSIUM DECREASED [None]
  - BRADYCARDIA [None]
  - CARDIAC ARREST [None]
  - CONVULSION [None]
  - CYANOSIS [None]
  - MYDRIASIS [None]
  - POSTURING [None]
  - PULMONARY EMBOLISM [None]
  - PUPILS UNEQUAL [None]
  - RESPIRATORY DISTRESS [None]
  - TREATMENT FAILURE [None]
  - VASOCONSTRICTION [None]
